FAERS Safety Report 4860244-1 (Version None)
Quarter: 2005Q4

REPORT INFORMATION
  Report Type: 
  Country: None (occurrence: None)
  Receive Date: 20051215
  Receipt Date: 20051201
  Transmission Date: 20060501
  Serious: Yes (Life-Threatening, Hospitalization)
  Sender: FDA-Public Use
  Company Number: PHBS2005US17805

PATIENT
  Age: 80 Year
  Sex: Female

DRUGS (9)
  1. VISUDYNE [Suspect]
     Indication: CHOROIDAL NEOVASCULARISATION
  2. LEVOTHYROXINE SODIUM [Concomitant]
  3. METOPROLOL [Concomitant]
  4. FUROSEMIDE [Concomitant]
  5. DIGOXIN [Concomitant]
  6. CELECOXIB [Concomitant]
  7. LISINOPRIL [Concomitant]
  8. WARFARIN [Concomitant]
  9. ASPIRIN [Concomitant]

REACTIONS (8)
  - ANAPHYLACTOID REACTION [None]
  - APPLICATION SITE REACTION [None]
  - ATRIAL FIBRILLATION [None]
  - BLOOD PRESSURE SYSTOLIC INCREASED [None]
  - ERYTHEMA [None]
  - MACULAR SCAR [None]
  - PAIN IN EXTREMITY [None]
  - PROCEDURAL COMPLICATION [None]
